FAERS Safety Report 8613246 (Version 3)
Quarter: 2013Q2

REPORT INFORMATION
  Report Type: Spontaneous
  Country: US (occurrence: US)
  Receive Date: 20120613
  Receipt Date: 20130520
  Transmission Date: 20140414
  Serious: Yes (Other)
  Sender: FDA-Public Use
  Company Number: US-ASTRAZENECA-2005UW05100

PATIENT
  Age: 85 Year
  Sex: Female

DRUGS (2)
  1. RHINOCORT AQUA [Suspect]
     Route: 045
  2. NEXIUM [Suspect]
     Indication: GASTROOESOPHAGEAL REFLUX DISEASE
     Route: 048

REACTIONS (7)
  - Neoplasm malignant [Unknown]
  - Cataract [Unknown]
  - Psychomotor hyperactivity [Unknown]
  - Flatulence [Unknown]
  - Malaise [Unknown]
  - Bladder disorder [Unknown]
  - Stress [Unknown]
